FAERS Safety Report 15757969 (Version 1)
Quarter: 2018Q4

REPORT INFORMATION
  Report Type: Spontaneous
  Country: IN (occurrence: IN)
  Receive Date: 20181225
  Receipt Date: 20181225
  Transmission Date: 20190205
  Serious: Yes (Life-Threatening, Hospitalization, Other)
  Sender: FDA-Public Use
  Company Number: IN-ACCORD-090926

PATIENT
  Age: 28 Year
  Sex: Female

DRUGS (2)
  1. TELMISARTAN. [Suspect]
     Active Substance: TELMISARTAN
     Dosage: 40 MG (30 TABLETS)
     Route: 048
  2. AMLODIPINE [Suspect]
     Active Substance: AMLODIPINE BESYLATE
     Dosage: 60 (DF) TOTAL
     Route: 048

REACTIONS (6)
  - Intentional overdose [Unknown]
  - Shock [Recovered/Resolved]
  - Metabolic acidosis [Recovered/Resolved]
  - Vasoplegia syndrome [Recovered/Resolved]
  - Acute kidney injury [Recovering/Resolving]
  - Suicide attempt [Unknown]
